FAERS Safety Report 4526334-8 (Version None)
Quarter: 2004Q4

REPORT INFORMATION
  Report Type: 
  Country: None (occurrence: None)
  Receive Date: 20041210
  Receipt Date: 20041129
  Transmission Date: 20050328
  Serious: Yes (Death, Life-Threatening)
  Sender: FDA-Public Use
  Company Number: 2004101087

PATIENT
  Age: 73 Year
  Sex: Male

DRUGS (3)
  1. ESTRAMUSTINE PHOSPHATE SODIUM CAPSULE (ESTRAMUSTINE PHOSPHATE SODIUM) [Suspect]
     Indication: PROSTATE CANCER
     Dosage: (CYCLICAL)
     Dates: start: 20040630, end: 20040704
  2. DOCETAXEL (DOCETAXEL) [Suspect]
     Indication: PROSTATE CANCER
     Dosage: INTRAVENOUS
     Route: 042
     Dates: start: 20040630, end: 20040630
  3. ANTIALLERGIC AGENTS EXCL CORTICOSTEROIDS (ANTIALLERGIC AGENTS, EXCL CO [Concomitant]

REACTIONS (13)
  - ANAEMIA [None]
  - APLASIA [None]
  - DIARRHOEA [None]
  - GASTROINTESTINAL DISORDER [None]
  - NECROSIS [None]
  - PURULENCE [None]
  - PYREXIA [None]
  - RESPIRATORY DISTRESS [None]
  - SKIN BLEEDING [None]
  - STEVENS-JOHNSON SYNDROME [None]
  - SUDDEN DEATH [None]
  - THROMBOCYTOPENIA [None]
  - WHITE BLOOD CELL COUNT DECREASED [None]
